FAERS Safety Report 8117166-2 (Version None)
Quarter: 2012Q1

REPORT INFORMATION
  Report Type: 
  Country: None (occurrence: None)
  Receive Date: 20120206
  Receipt Date: 20120201
  Transmission Date: 20120608
  Serious: Yes (Hospitalization)
  Sender: FDA-Public Use
  Company Number: US-VERTEX PHARMACEUTICALS INC.-AE-2012-001715

PATIENT
  Sex: Male

DRUGS (3)
  1. RIBAVIRIN [Concomitant]
     Indication: HEPATITIS C
  2. INCIVEK [Suspect]
     Indication: HEPATITIS C
     Route: 048
     Dates: start: 20120113, end: 20120127
  3. INTERFERON [Concomitant]
     Indication: HEPATITIS C
     Dates: start: 20120113, end: 20120127

REACTIONS (3)
  - HALLUCINATION [None]
  - HYPERHIDROSIS [None]
  - BLOOD PRESSURE INCREASED [None]
